FAERS Safety Report 4627697-5 (Version None)
Quarter: 2005Q2

REPORT INFORMATION
  Report Type: 
  Country: None (occurrence: None)
  Receive Date: 20050401
  Receipt Date: 20050317
  Transmission Date: 20051028
  Serious: Yes (Hospitalization, Other)
  Sender: FDA-Public Use
  Company Number: 2005BI006093

PATIENT
  Age: 50 Year
  Sex: Male

DRUGS (1)
  1. AVONEX [Suspect]
     Indication: MULTIPLE SCLEROSIS
     Dosage: 30 QW; QW; IM
     Route: 030
     Dates: start: 19970101

REACTIONS (2)
  - COLLAPSE OF LUNG [None]
  - CORONARY ARTERY SURGERY [None]
